FAERS Safety Report 17390019 (Version 1)
Quarter: 2020Q1

REPORT INFORMATION
  Report Type: Spontaneous
  Country: SE (occurrence: SE)
  Receive Date: 20200207
  Receipt Date: 20200207
  Transmission Date: 20200409
  Serious: Yes (Hospitalization)
  Sender: FDA-Public Use
  Company Number: SE-OTSUKA-2019_004094

PATIENT
  Age: 22 Year
  Sex: Female

DRUGS (3)
  1. ABILIFY MAINTENA [Suspect]
     Active Substance: ARIPIPRAZOLE
     Indication: SCHIZOPHRENIA
     Dosage: 0.7 ML (OF THE SYRINGE WITH 400 MG), EVERY FOUR WEEKS
     Route: 065
     Dates: start: 20171215
  2. ABILIFY MAINTENA [Suspect]
     Active Substance: ARIPIPRAZOLE
     Dosage: 1.0 ML, EVERY FOUR WEEKS
     Route: 065
     Dates: start: 20190618, end: 20190813
  3. DIVISUN [Concomitant]
     Active Substance: CHOLECALCIFEROL
     Indication: PRODUCT USED FOR UNKNOWN INDICATION
     Dosage: 800 IE, TOTAL DAILY DOSE 2+0+0
     Route: 065

REACTIONS (4)
  - Disease recurrence [Unknown]
  - Product dose omission [Unknown]
  - Refusal of treatment by patient [Unknown]
  - Maternal exposure during pregnancy [Unknown]

NARRATIVE: CASE EVENT DATE: 2018
